FAERS Safety Report 7002086-7 (Version None)
Quarter: 2010Q3

REPORT INFORMATION
  Report Type: 
  Country: None (occurrence: None)
  Receive Date: 20100920
  Receipt Date: 20090717
  Transmission Date: 20110219
  Serious: Yes (Other)
  Sender: FDA-Public Use
  Company Number: US-ASTRAZENECA-2009UW09069

PATIENT
  Age: 5167 Day
  Sex: Female

DRUGS (7)
  1. SEROQUEL [Suspect]
     Indication: BIPOLAR DISORDER
     Route: 048
     Dates: start: 19980101, end: 20011105
  2. SEROQUEL [Suspect]
     Indication: ATTENTION DEFICIT/HYPERACTIVITY DISORDER
     Route: 048
     Dates: start: 19980101, end: 20011105
  3. SEROQUEL [Suspect]
     Route: 048
     Dates: start: 20011105
  4. SEROQUEL [Suspect]
     Route: 048
     Dates: start: 20011105
  5. RISPERDAL [Concomitant]
     Dosage: 5 MG TO 25 MG
     Dates: start: 19980101, end: 20011105
  6. DEPAKOTE [Concomitant]
     Dosage: 250 TO 1000 MG
     Route: 048
     Dates: start: 20011105
  7. LITHONATE [Concomitant]
     Route: 048
     Dates: start: 20011105

REACTIONS (1)
  - DIABETIC KETOACIDOSIS [None]
